FAERS Safety Report 9765767 (Version 1)
Quarter: 2013Q4

REPORT INFORMATION
  Report Type: Spontaneous
  Country: US (occurrence: US)
  Receive Date: 20131217
  Receipt Date: 20131217
  Transmission Date: 20140711
  Serious: No
  Sender: FDA-Public Use
  Company Number: US-GLAXOSMITHKLINE-A1011306A

PATIENT
  Age: 50 Year
  Sex: Female

DRUGS (6)
  1. VOTRIENT [Suspect]
     Indication: PRODUCT USED FOR UNKNOWN INDICATION
     Dosage: 200MG SEE DOSAGE TEXT
     Route: 048
  2. AFINITOR [Concomitant]
     Indication: PRODUCT USED FOR UNKNOWN INDICATION
  3. GEMFIBROZIL [Concomitant]
  4. ATENOLOL [Concomitant]
  5. PAROXETINE [Concomitant]
  6. LEVOTHYROXINE [Concomitant]

REACTIONS (4)
  - Bone pain [Unknown]
  - Pain in extremity [Unknown]
  - Gait disturbance [Unknown]
  - Hypertension [Unknown]
